FAERS Safety Report 20113657 (Version 2)
Quarter: 2021Q4

REPORT INFORMATION
  Report Type: Spontaneous
  Country: US (occurrence: US)
  Receive Date: 20211125
  Receipt Date: 20211230
  Transmission Date: 20220303
  Serious: No
  Sender: FDA-Public Use
  Company Number: US-GW PHARMA-202111USGW05729

PATIENT

DRUGS (4)
  1. EPIDIOLEX [Suspect]
     Active Substance: CANNABIDIOL
     Indication: Partial seizures
     Dosage: 1 MILLIGRAM/KILOGRAM
     Route: 048
     Dates: start: 2019, end: 202104
  2. EPIDIOLEX [Suspect]
     Active Substance: CANNABIDIOL
     Indication: Epilepsy
     Dosage: 60 MILLIGRAM/0.6 MG/KG
     Route: 048
     Dates: start: 202104, end: 202110
  3. EPIDIOLEX [Suspect]
     Active Substance: CANNABIDIOL
     Indication: Simple partial seizures
     Dosage: 30 MILLIGRAM, BID
     Route: 048
     Dates: start: 20211022
  4. EPIDIOLEX [Suspect]
     Active Substance: CANNABIDIOL
     Indication: Epilepsy

REACTIONS (16)
  - Osteoporosis [Unknown]
  - Gingival blister [Unknown]
  - Alopecia [Not Recovered/Not Resolved]
  - Macular degeneration [Unknown]
  - Ankle fracture [Unknown]
  - Tendon injury [Unknown]
  - Fall [Unknown]
  - Amnesia [Unknown]
  - Disturbance in attention [Not Recovered/Not Resolved]
  - Seizure [Not Recovered/Not Resolved]
  - Asthenia [Unknown]
  - Abdominal discomfort [Unknown]
  - Diarrhoea [Recovered/Resolved]
  - Decreased appetite [Not Recovered/Not Resolved]
  - Somnolence [Unknown]
  - Product use in unapproved indication [Unknown]

NARRATIVE: CASE EVENT DATE: 20190101
